FAERS Safety Report 7901462-5 (Version None)
Quarter: 2011Q4

REPORT INFORMATION
  Report Type: 
  Country: None (occurrence: None)
  Receive Date: 20111108
  Receipt Date: 20111024
  Transmission Date: 20120403
  Serious: Yes (Hospitalization)
  Sender: FDA-Public Use
  Company Number: NL-ROCHE-1004289

PATIENT
  Sex: Male

DRUGS (5)
  1. EPIRUBICIN HYDROCHLORIDE [Suspect]
     Indication: GASTRIC CANCER
     Route: 042
     Dates: start: 20110510
  2. CISPLATIN [Suspect]
     Indication: GASTRIC CANCER
     Dosage: EVERY 1 WEEK, 5 WEEKS
     Route: 042
     Dates: start: 20110510
  3. XELODA [Suspect]
     Indication: GASTRIC CANCER
     Dosage: BID FOR 2 WEEKS, 5 WEEKS
     Route: 048
     Dates: start: 20110510
  4. PANTOPRAZOLE [Concomitant]
     Dates: start: 20110101
  5. ACETAMINOPHEN [Concomitant]
     Dates: start: 20110620

REACTIONS (2)
  - DEHYDRATION [None]
  - FISTULA [None]
